FAERS Safety Report 4625480-8 (Version None)
Quarter: 2005Q2

REPORT INFORMATION
  Report Type: 
  Country: None (occurrence: None)
  Receive Date: 20050401
  Receipt Date: 20050322
  Transmission Date: 20051028
  Serious: Yes (Hospitalization)
  Sender: FDA-Public Use
  Company Number: NO-JNJFOC-20050305452

PATIENT
  Sex: Female

DRUGS (9)
  1. REMICADE [Suspect]
     Indication: RHEUMATOID ARTHRITIS
     Dosage: 20 INFUSIONS IN TOTAL
     Route: 042
  2. PREDNISOLONE [Concomitant]
     Indication: RHEUMATOID ARTHRITIS
     Route: 065
  3. FOLIC ACID [Concomitant]
     Indication: RHEUMATOID ARTHRITIS
     Route: 065
  4. METHOTREXATE [Concomitant]
     Indication: RHEUMATOID ARTHRITIS
     Route: 065
  5. RISEDRONIC ACID [Concomitant]
     Indication: OSTEOPOROSIS
     Route: 065
  6. CALCIGRAN FORTE [Concomitant]
     Route: 049
  7. CALCIGRAN FORTE [Concomitant]
     Route: 049
  8. CALCIGRAN FORTE [Concomitant]
     Route: 049
  9. CALCIGRAN FORTE [Concomitant]
     Indication: OSTEOPOROSIS
     Route: 049

REACTIONS (3)
  - C-REACTIVE PROTEIN INCREASED [None]
  - INFUSION RELATED REACTION [None]
  - PYREXIA [None]
